FAERS Safety Report 6380776-7 (Version None)
Quarter: 2009Q3

REPORT INFORMATION
  Report Type: 
  Country: None (occurrence: None)
  Receive Date: 20090924
  Receipt Date: 20090908
  Transmission Date: 20100115
  Serious: Yes (Hospitalization)
  Sender: FDA-Public Use
  Company Number: 8052070

PATIENT
  Age: 13 Year
  Sex: Male

DRUGS (4)
  1. PREDNISOLONE [Suspect]
  2. TACROLIMUS [Concomitant]
  3. MYCOPHENOLATE MOFETIL [Concomitant]
  4. MESALAMINE [Concomitant]

REACTIONS (2)
  - COLITIS ULCERATIVE [None]
  - PSEUDOPOLYP [None]
